FAERS Safety Report 5545868-0 (Version None)
Quarter: 2007Q4

REPORT INFORMATION
  Report Type: 
  Country: None (occurrence: None)
  Receive Date: 20071211
  Receipt Date: 20070917
  Transmission Date: 20080405
  Serious: No
  Sender: FDA-Public Use
  Company Number: US-ASTRAZENECA-2007UW20608

PATIENT
  Age: 6297 Day
  Sex: Female
  Weight: 48.6 kg

DRUGS (7)
  1. SYMBICORT [Suspect]
     Indication: ASTHMA
     Dosage: 160/4.5 UG TWO INHALATIONS BID
     Route: 055
  2. SINGULAIR [Concomitant]
     Indication: ASTHMA
  3. PULMICORT [Concomitant]
     Indication: ASTHMA
     Route: 055
  4. OPENEX [Concomitant]
     Indication: ASTHMA
  5. LOESTRIN 1.5/30 [Concomitant]
     Indication: MENSTRUATION IRREGULAR
  6. MOTRIN [Concomitant]
     Indication: MONONUCLEOSIS SYNDROME
  7. ALEVE [Concomitant]
     Indication: INFECTIOUS MONONUCLEOSIS

REACTIONS (2)
  - MUSCULOSKELETAL CHEST PAIN [None]
  - MUSCULOSKELETAL PAIN [None]
